FAERS Safety Report 21136223 (Version 1)
Quarter: 2022Q3

REPORT INFORMATION
  Report Type: Spontaneous
  Country: US (occurrence: US)
  Receive Date: 20220727
  Receipt Date: 20220727
  Transmission Date: 20221026
  Serious: Yes (Disabling, Other)
  Sender: FDA-Public Use
  Company Number: US-NOVARTISPH-NVSC2022US164664

PATIENT
  Age: 34 Year
  Sex: Male

DRUGS (1)
  1. TRIAMCINOLONE [Suspect]
     Active Substance: TRIAMCINOLONE
     Indication: Product used for unknown indication
     Dosage: UNK (INTO NASAL MUCOSA)
     Route: 006

REACTIONS (2)
  - Retinal vascular occlusion [Not Recovered/Not Resolved]
  - Vascular occlusion [Not Recovered/Not Resolved]
